FAERS Safety Report 5876739-8 (Version None)
Quarter: 2008Q3

REPORT INFORMATION
  Report Type: 
  Country: None (occurrence: None)
  Receive Date: 20080910
  Receipt Date: 20080905
  Transmission Date: 20090109
  Serious: Yes (Disabling)
  Sender: FDA-Public Use
  Company Number: US-MERCK-0808USA04988

PATIENT
  Sex: Female

DRUGS (5)
  1. ZOCOR [Suspect]
     Indication: BLOOD CHOLESTEROL INCREASED
     Route: 048
     Dates: start: 20020101, end: 20080101
  2. ZOCOR [Suspect]
     Route: 048
     Dates: start: 20080101, end: 20080815
  3. COZAAR [Concomitant]
     Route: 048
  4. ACCURETIC [Concomitant]
     Route: 065
  5. VITAMIN D (UNSPECIFIED) [Concomitant]
     Route: 065

REACTIONS (5)
  - ABASIA [None]
  - INAPPROPRIATE SCHEDULE OF DRUG ADMINISTRATION [None]
  - MUSCLE SPASMS [None]
  - MYALGIA [None]
  - PAIN IN EXTREMITY [None]
